FAERS Safety Report 17151202 (Version 11)
Quarter: 2025Q3

REPORT INFORMATION
  Report Type: Report from Study
  Country: US (occurrence: US)
  Receive Date: 20191213
  Receipt Date: 20250713
  Transmission Date: 20251021
  Serious: Yes (Hospitalization, Other)
  Sender: TAKEDA
  Company Number: US-SHIRE-US201942596

PATIENT
  Age: 72 Year
  Sex: Female
  Weight: 72 kg

DRUGS (45)
  1. HUMAN IMMUNOGLOBULIN G [Suspect]
     Active Substance: HUMAN IMMUNOGLOBULIN G
     Indication: Immunodeficiency common variable
     Dosage: 10 GRAM, 1/WEEK
     Dates: start: 20170802
  2. HUMAN IMMUNOGLOBULIN G [Suspect]
     Active Substance: HUMAN IMMUNOGLOBULIN G
     Dosage: 10 GRAM, 1/WEEK
  3. HUMAN IMMUNOGLOBULIN G [Suspect]
     Active Substance: HUMAN IMMUNOGLOBULIN G
     Dosage: 10 GRAM, 1/WEEK
     Dates: start: 20171105
  4. ZYRTEC [Concomitant]
     Active Substance: CETIRIZINE HYDROCHLORIDE
  5. AMOXICILLIN [Concomitant]
     Active Substance: AMOXICILLIN
  6. ESOMEPRAZOLE MAGNESIUM [Concomitant]
     Active Substance: ESOMEPRAZOLE MAGNESIUM
  7. ALBUTEROL SULFATE [Concomitant]
     Active Substance: ALBUTEROL SULFATE
  8. ATORVASTATIN CALCIUM [Concomitant]
     Active Substance: ATORVASTATIN CALCIUM
  9. GABAPENTIN [Concomitant]
     Active Substance: GABAPENTIN
  10. VITAMIN D3 [Concomitant]
     Active Substance: CHOLECALCIFEROL
  11. ACETAMINOPHEN [Concomitant]
     Active Substance: ACETAMINOPHEN
  12. MUCINEX [Concomitant]
     Active Substance: GUAIFENESIN
  13. CELEBREX [Concomitant]
     Active Substance: CELECOXIB
  14. DALIRESP [Concomitant]
     Active Substance: ROFLUMILAST
  15. FLUTICASONE PROPIONATE [Concomitant]
     Active Substance: FLUTICASONE PROPIONATE
  16. DOXYCYCLINE [Concomitant]
     Active Substance: DOXYCYCLINE
  17. XANAX [Concomitant]
     Active Substance: ALPRAZOLAM
  18. MONTELUKAST SODIUM [Concomitant]
     Active Substance: MONTELUKAST SODIUM
  19. STOOL SOFTENER (DOCUSATE) [Concomitant]
     Active Substance: DOCUSATE
  20. CITALOPRAM HYDROBROMIDE [Concomitant]
     Active Substance: CITALOPRAM HYDROBROMIDE
  21. ALBUTEROL\IPRATROPIUM [Concomitant]
     Active Substance: ALBUTEROL\IPRATROPIUM
  22. AMLODIPINE BESYLATE [Concomitant]
     Active Substance: AMLODIPINE BESYLATE
  23. YUPELRI [Concomitant]
     Active Substance: REVEFENACIN
  24. BUDESONIDE [Concomitant]
     Active Substance: BUDESONIDE
  25. IPRATROPIUM BROMIDE [Concomitant]
     Active Substance: IPRATROPIUM BROMIDE
  26. DIPHENHYDRAMINE [Concomitant]
     Active Substance: DIPHENHYDRAMINE
  27. EPINEPHRINE [Concomitant]
     Active Substance: EPINEPHRINE
  28. PREDNISONE [Concomitant]
     Active Substance: PREDNISONE
  29. ZITHROMAX [Concomitant]
     Active Substance: AZITHROMYCIN DIHYDRATE
  30. DRONABINOL [Concomitant]
     Active Substance: DRONABINOL
  31. SYMBICORT [Concomitant]
     Active Substance: BUDESONIDE\FORMOTEROL FUMARATE DIHYDRATE
  32. CLONIDINE [Concomitant]
     Active Substance: CLONIDINE
  33. SAVELLA [Concomitant]
     Active Substance: MILNACIPRAN HYDROCHLORIDE
  34. BENZALKONIUM CHLORIDE\SODIUM CHLORIDE [Concomitant]
     Active Substance: BENZALKONIUM CHLORIDE\SODIUM CHLORIDE
  35. DEXILANT [Concomitant]
     Active Substance: DEXLANSOPRAZOLE
  36. GLUCOSAMINE + CHONDROITIN + MSM [Concomitant]
  37. AUGMENTIN [Concomitant]
     Active Substance: AMOXICILLIN\CLAVULANATE POTASSIUM
  38. VENTOLIN HFA [Concomitant]
     Active Substance: ALBUTEROL SULFATE
  39. DIPHENHYDRAMINE HYDROCHLORIDE [Concomitant]
     Active Substance: DIPHENHYDRAMINE HYDROCHLORIDE
  40. OMEPRAZOLE MAGNESIUM [Concomitant]
     Active Substance: OMEPRAZOLE MAGNESIUM
  41. VENTOLIN [Concomitant]
     Active Substance: ALBUTEROL SULFATE
  42. VITAMIN C [Concomitant]
     Active Substance: ASCORBIC ACID
  43. AZOR [Concomitant]
     Active Substance: AMLODIPINE BESYLATE\OLMESARTAN MEDOXOMIL
  44. SPIRIVA [Concomitant]
     Active Substance: TIOTROPIUM BROMIDE MONOHYDRATE
  45. VITAMIN D [Concomitant]
     Active Substance: VITAMIN D NOS

REACTIONS (15)
  - Renal mass [Unknown]
  - Cataract [Unknown]
  - Dehydration [Unknown]
  - Viral infection [Unknown]
  - Pharyngitis [Unknown]
  - COVID-19 [Unknown]
  - Iron deficiency anaemia [Unknown]
  - Blood pressure decreased [Recovering/Resolving]
  - Bacterial infection [Unknown]
  - Weight decreased [Unknown]
  - Sinus disorder [Unknown]
  - Nasopharyngitis [Unknown]
  - Multiple allergies [Unknown]
  - Sinusitis [Unknown]
  - Hypersensitivity [Not Recovered/Not Resolved]

NARRATIVE: CASE EVENT DATE: 20191203
